FAERS Safety Report 20969301 (Version 1)
Quarter: 2022Q2

REPORT INFORMATION
  Report Type: Spontaneous
  Country: US (occurrence: US)
  Receive Date: 20220616
  Receipt Date: 20220616
  Transmission Date: 20220721
  Serious: No
  Sender: FDA-Public Use
  Company Number: US-SK LIFE SCIENCE, INC-SKPVG-2022-000284

PATIENT

DRUGS (4)
  1. XCOPRI [Suspect]
     Active Substance: CENOBAMATE
     Indication: Status epilepticus
     Dosage: 50 MILLIGRAM (RAPID TITRATION IN 4 DAYS 50?100?150?200 MG)
     Route: 048
  2. XCOPRI [Suspect]
     Active Substance: CENOBAMATE
     Dosage: 100 MILLIGRAM (RAPID TITRATION IN 4 DAYS 50?100?150?200 MG)
     Route: 048
  3. XCOPRI [Suspect]
     Active Substance: CENOBAMATE
     Dosage: 150 MILLIGRAM (RAPID TITRATION IN 4 DAYS 50?100?150?200 MG)
     Route: 048
  4. XCOPRI [Suspect]
     Active Substance: CENOBAMATE
     Dosage: 200 MILLIGRAM (RAPID TITRATION IN 4 DAYS 50?100?150?200 MG)
     Route: 048

REACTIONS (2)
  - Product use in unapproved indication [Unknown]
  - Drug titration error [Unknown]
